FAERS Safety Report 23421459 (Version 1)
Quarter: 2024Q1

REPORT INFORMATION
  Report Type: Spontaneous
  Country: US (occurrence: US)
  Receive Date: 20240119
  Receipt Date: 20240119
  Transmission Date: 20240409
  Serious: Yes (Hospitalization, Other)
  Sender: FDA-Public Use
  Company Number: US-TORRENT-00013372

PATIENT
  Age: 29 Year
  Sex: Male

DRUGS (9)
  1. ARIPIPRAZOLE [Suspect]
     Active Substance: ARIPIPRAZOLE
     Indication: Product used for unknown indication
     Dosage: 2.5 MG DAILY
     Route: 065
  2. OLANZAPINE [Suspect]
     Active Substance: OLANZAPINE
     Indication: Product used for unknown indication
     Dosage: 5 MG DAILY
     Route: 065
  3. RISPERIDONE [Suspect]
     Active Substance: RISPERIDONE
     Indication: Aggression
     Dosage: 0.5 MG DAILY AND 1 MG NIGHTLY
     Route: 065
  4. BUSPIRONE [Suspect]
     Active Substance: BUSPIRONE HYDROCHLORIDE
     Indication: Product used for unknown indication
     Dosage: 5 MG TWICE DAILY
     Route: 065
  5. CLONAZEPAM [Suspect]
     Active Substance: CLONAZEPAM
     Indication: Product used for unknown indication
     Dosage: 0.25 MG DAILY
     Route: 065
  6. LORAZEPAM [Suspect]
     Active Substance: LORAZEPAM
     Indication: Product used for unknown indication
     Dosage: 1 MG DAILY
     Route: 065
  7. NALTREXONE [Suspect]
     Active Substance: NALTREXONE
     Indication: Product used for unknown indication
     Dosage: 50 MG DAILY
     Route: 065
  8. SERTRALINE [Suspect]
     Active Substance: SERTRALINE HYDROCHLORIDE
     Indication: Autism spectrum disorder
     Dosage: (UP TO 50 MG DAILY)
     Route: 066
  9. VALPROATE [Suspect]
     Active Substance: VALPROIC ACID
     Indication: Product used for unknown indication
     Dosage: EXTENDED RELEASE 500 MG
     Route: 065

REACTIONS (13)
  - Akathisia [Recovered/Resolved]
  - Aggression [Recovered/Resolved]
  - Diabetes mellitus [Unknown]
  - Social avoidant behaviour [Unknown]
  - Disinhibited social engagement disorder of childhood [Unknown]
  - Gastrointestinal disorder [Recovered/Resolved]
  - Salivary hypersecretion [Recovered/Resolved]
  - Nausea [Recovered/Resolved]
  - Confusional state [Recovered/Resolved]
  - Hyperammonaemia [Recovered/Resolved]
  - Parotitis [Recovered/Resolved]
  - Tremor [Recovered/Resolved]
  - Language disorder [Unknown]
